FAERS Safety Report 10254535 (Version 1)
Quarter: 2014Q2

REPORT INFORMATION
  Report Type: Spontaneous
  Country: FR (occurrence: FR)
  Receive Date: 20140624
  Receipt Date: 20140624
  Transmission Date: 20141212
  Serious: Yes (Other)
  Sender: FDA-Public Use
  Company Number: FR-ROCHE-1423048

PATIENT
  Sex: Female

DRUGS (3)
  1. AVASTIN [Suspect]
     Indication: BRONCHIAL CARCINOMA
     Route: 065
     Dates: end: 2013
  2. CISPLATINE [Concomitant]
  3. ALIMTA [Concomitant]

REACTIONS (1)
  - Leukoencephalopathy [Not Recovered/Not Resolved]
